FAERS Safety Report 10276045 (Version 1)
Quarter: 2014Q3

REPORT INFORMATION
  Report Type: Other
  Country: IT (occurrence: IT)
  Receive Date: 20140703
  Receipt Date: 20140703
  Transmission Date: 20150326
  Serious: Yes (Other)
  Sender: FDA-Public Use
  Company Number: IT-VERTEX PHARMACEUTICALS INC-2014-002957

PATIENT
  Age: 48 Year
  Sex: Male
  Weight: 92 kg

DRUGS (3)
  1. REBETOL [Interacting]
     Active Substance: RIBAVIRIN
     Indication: CHRONIC HEPATITIS C
     Dosage: 800 MG, UNK
     Route: 048
     Dates: start: 20140517, end: 20140619
  2. PEGINTRON [Interacting]
     Active Substance: PEGINTERFERON ALFA-2B
     Indication: CHRONIC HEPATITIS C
     Dosage: 100 ?G, UNK
     Route: 058
     Dates: start: 20140517, end: 20140619
  3. INCIVO [Suspect]
     Active Substance: TELAPREVIR
     Indication: HEPATITIS C
     Dosage: 1875 MG, QOD
     Route: 048
     Dates: start: 20140517, end: 20140616

REACTIONS (5)
  - Epistaxis [Recovered/Resolved]
  - Drug interaction [Unknown]
  - Tumour haemorrhage [Recovered/Resolved]
  - Muscle haemorrhage [Recovered/Resolved]
  - Inappropriate schedule of drug administration [Unknown]

NARRATIVE: CASE EVENT DATE: 20140610
